FAERS Safety Report 4848660-5 (Version None)
Quarter: 2005Q4

REPORT INFORMATION
  Report Type: 
  Country: None (occurrence: None)
  Receive Date: 20051206
  Receipt Date: 20051123
  Transmission Date: 20060501
  Serious: Yes (Hospitalization)
  Sender: FDA-Public Use
  Company Number: TR-SHR-03-004604

PATIENT
  Age: 31 Year
  Sex: Male
  Weight: 62 kg

DRUGS (2)
  1. BETAFERON (INTERFERON BETA - 1B) INJECTION [Suspect]
     Indication: MULTIPLE SCLEROSIS
     Dosage: 8 MIU, EVERY 2D, SUBCUTANEOUS
     Route: 058
     Dates: start: 20010101, end: 20030319
  2. PARACETAMOL/ CAFFEINE [Concomitant]

REACTIONS (6)
  - ANAEMIA HAEMOLYTIC AUTOIMMUNE [None]
  - BLOOD GLUCOSE INCREASED [None]
  - CYTOMEGALOVIRUS ANTIBODY POSITIVE [None]
  - HEADACHE [None]
  - HYPOAESTHESIA [None]
  - PLATELET COUNT INCREASED [None]
